FAERS Safety Report 15829205 (Version 1)
Quarter: 2019Q1

REPORT INFORMATION
  Report Type: Spontaneous
  Country: US (occurrence: US)
  Receive Date: 20190115
  Receipt Date: 20190115
  Transmission Date: 20190417
  Serious: No
  Sender: FDA-Public Use
  Company Number: US-ALLERGAN-1855126US

PATIENT
  Age: 68 Year
  Sex: Female

DRUGS (2)
  1. OTC EYE GTTS [Concomitant]
     Indication: DRY EYE
     Dosage: UNK, PRN
     Route: 047
  2. RESTASIS [Suspect]
     Active Substance: CYCLOSPORINE
     Indication: DRY EYE
     Dosage: 2 GTT, BID
     Route: 047
     Dates: start: 20181121

REACTIONS (3)
  - Eye pain [Not Recovered/Not Resolved]
  - Product container issue [Unknown]
  - Incorrect dose administered [Unknown]

NARRATIVE: CASE EVENT DATE: 201811
